FAERS Safety Report 7933396-4 (Version None)
Quarter: 2011Q4

REPORT INFORMATION
  Report Type: 
  Country: None (occurrence: None)
  Receive Date: 20111122
  Receipt Date: 20111122
  Transmission Date: 20120403
  Serious: Yes (Other)
  Sender: FDA-Public Use
  Company Number: None

PATIENT
  Age: 32 Year
  Sex: Female
  Weight: 49.895 kg

DRUGS (1)
  1. BUPROPION HCL [Suspect]
     Indication: DEPRESSION
     Dosage: 75MG
     Dates: start: 20111110, end: 20111119

REACTIONS (10)
  - MIGRAINE [None]
  - DEPRESSION [None]
  - HEADACHE [None]
  - ANGER [None]
  - FATIGUE [None]
  - TOXICITY TO VARIOUS AGENTS [None]
  - DIZZINESS [None]
  - SUICIDAL IDEATION [None]
  - PRODUCT SUBSTITUTION ISSUE [None]
  - NAUSEA [None]
